FAERS Safety Report 10283762 (Version 1)
Quarter: 2014Q3

REPORT INFORMATION
  Report Type: Spontaneous
  Country: FR (occurrence: None)
  Receive Date: 20140703
  Receipt Date: 20140703
  Transmission Date: 20150326
  Serious: Yes (Other)
  Sender: FDA-Public Use
  Company Number: FR-20140219

PATIENT
  Age: 61 Year
  Sex: Male

DRUGS (1)
  1. DOTAREM [Suspect]
     Active Substance: GADOTERATE MEGLUMINE
     Indication: NUCLEAR MAGNETIC RESONANCE IMAGING BRAIN
     Dosage: (1 IN 1 D)
     Dates: start: 20140617, end: 20140617

REACTIONS (10)
  - Hypotension [None]
  - Injection site erythema [None]
  - Disturbance in attention [None]
  - Hypersensitivity [None]
  - Muscular weakness [None]
  - Fatigue [None]
  - Chills [None]
  - Somnolence [None]
  - Presyncope [None]
  - Injection site inflammation [None]

NARRATIVE: CASE EVENT DATE: 20140617
